FAERS Safety Report 13013166 (Version 1)
Quarter: 2016Q4

REPORT INFORMATION
  Report Type: Spontaneous
  Country: HR (occurrence: HR)
  Receive Date: 20161209
  Receipt Date: 20161209
  Transmission Date: 20170207
  Serious: Yes (Hospitalization, Other)
  Sender: FDA-Public Use
  Company Number: HR-GILEAD-2016-0247112

PATIENT
  Sex: Male

DRUGS (9)
  1. NEORAL [Concomitant]
     Active Substance: CYCLOSPORINE
  2. CELLCEPT [Concomitant]
     Active Substance: MYCOPHENOLATE MOFETIL\MYCOPHENOLATE MOFETIL HYDROCHLORIDE
  3. INSULIN [Concomitant]
     Active Substance: INSULIN NOS
  4. DECORTIN [Concomitant]
     Active Substance: PREDNISONE
  5. DILTIAZEM. [Concomitant]
     Active Substance: DILTIAZEM
  6. VALCYTE [Concomitant]
     Active Substance: VALGANCICLOVIR HYDROCHLORIDE
  7. RIBAVIRIN. [Concomitant]
     Active Substance: RIBAVIRIN
  8. SINERSUL [Concomitant]
     Active Substance: SULFAMETHOXAZOLE\TRIMETHOPRIM
  9. HARVONI [Suspect]
     Active Substance: LEDIPASVIR\SOFOSBUVIR
     Indication: HEPATITIS C
     Dosage: UNK
     Route: 048
     Dates: start: 20160323, end: 20160615

REACTIONS (2)
  - Immunosuppression [Unknown]
  - Pneumonia [Recovered/Resolved]
